FAERS Safety Report 8884307 (Version 1)
Quarter: 2012Q4

REPORT INFORMATION
  Report Type: 
  Country: US (occurrence: US)
  Receive Date: 20121104
  Receipt Date: 20121104
  Transmission Date: 20130627
  Serious: No
  Sender: FDA-Public Use
  Company Number: US-ASTRAZENECA-2012SE81267

PATIENT
  Age: 53 Year
  Sex: Female

DRUGS (7)
  1. LISINOPRIL [Suspect]
     Route: 048
  2. LISINOPRIL [Suspect]
     Route: 048
  3. TOPROL XL [Suspect]
     Route: 048
  4. PRILOSEC OTC [Suspect]
     Route: 048
  5. CRESTOR [Suspect]
     Route: 048
  6. NORVASC [Concomitant]
  7. NEXIUM [Concomitant]

REACTIONS (13)
  - Blood pressure increased [Unknown]
  - Gastrointestinal haemorrhage [Unknown]
  - Heart rate decreased [Unknown]
  - Dehydration [Unknown]
  - Anaemia [Unknown]
  - Gastric disorder [Unknown]
  - Abdominal distension [Unknown]
  - Dizziness postural [Unknown]
  - Musculoskeletal pain [Unknown]
  - Back pain [Unknown]
  - Hypoaesthesia [Unknown]
  - Paraesthesia [Unknown]
  - Palpitations [Unknown]
